FAERS Safety Report 19800572 (Version 5)
Quarter: 2021Q4

REPORT INFORMATION
  Report Type: Report from Study
  Country: DE (occurrence: DE)
  Receive Date: 20210907
  Receipt Date: 20211215
  Transmission Date: 20220303
  Serious: No
  Sender: FDA-Public Use
  Company Number: DE-TAKEDA-2021TUS052944

PATIENT
  Age: 58 Year
  Sex: Male
  Weight: 77 kg

DRUGS (32)
  1. TEDUGLUTIDE [Suspect]
     Active Substance: TEDUGLUTIDE
     Indication: Short-bowel syndrome
     Dosage: 3.65 MILLIGRAM
     Route: 058
     Dates: start: 20160825, end: 201702
  2. TEDUGLUTIDE [Suspect]
     Active Substance: TEDUGLUTIDE
     Indication: Short-bowel syndrome
     Dosage: 3.65 MILLIGRAM
     Route: 058
     Dates: start: 20160825, end: 201702
  3. TEDUGLUTIDE [Suspect]
     Active Substance: TEDUGLUTIDE
     Indication: Short-bowel syndrome
     Dosage: 3.65 MILLIGRAM
     Route: 058
     Dates: start: 20160825, end: 201702
  4. TEDUGLUTIDE [Suspect]
     Active Substance: TEDUGLUTIDE
     Indication: Short-bowel syndrome
     Dosage: 3.65 MILLIGRAM
     Route: 058
     Dates: start: 20160825, end: 201702
  5. TEDUGLUTIDE [Suspect]
     Active Substance: TEDUGLUTIDE
     Dosage: 3.85 MILLIGRAM, QD
     Route: 058
     Dates: start: 201702
  6. TEDUGLUTIDE [Suspect]
     Active Substance: TEDUGLUTIDE
     Dosage: 3.85 MILLIGRAM, QD
     Route: 058
     Dates: start: 201702
  7. TEDUGLUTIDE [Suspect]
     Active Substance: TEDUGLUTIDE
     Dosage: 3.85 MILLIGRAM, QD
     Route: 058
     Dates: start: 201702
  8. TEDUGLUTIDE [Suspect]
     Active Substance: TEDUGLUTIDE
     Dosage: 3.85 MILLIGRAM, QD
     Route: 058
     Dates: start: 201702
  9. PANTOPRAZOLE [Concomitant]
     Active Substance: PANTOPRAZOLE
     Indication: Hyperchlorhydria
     Dosage: 40 MILLIGRAM, BID
     Route: 042
     Dates: start: 20150916
  10. CHOLESTYRAMINE [Concomitant]
     Active Substance: CHOLESTYRAMINE
     Indication: Bile acid malabsorption
     Dosage: 4 GRAM, QID
     Route: 048
  11. CHOLECALCIFEROL [Concomitant]
     Active Substance: CHOLECALCIFEROL
     Indication: Vitamin supplementation
     Dosage: 1000 INTERNATIONAL UNIT, QD
     Route: 048
  12. Aerius [Concomitant]
     Indication: Multiple allergies
     Dosage: UNK UNK, QD
     Route: 048
  13. SPIRIVA [Concomitant]
     Active Substance: TIOTROPIUM BROMIDE MONOHYDRATE
     Indication: Chronic obstructive pulmonary disease
     Dosage: UNK UNK, QD
     Route: 050
  14. SYMBICORT [Concomitant]
     Active Substance: BUDESONIDE\FORMOTEROL FUMARATE DIHYDRATE
     Indication: Chronic obstructive pulmonary disease
     Dosage: UNK UNK, BID
     Route: 050
  15. RAMIPRIL [Concomitant]
     Active Substance: RAMIPRIL
     Indication: Hypertension
     Dosage: 2.50 MILLIGRAM, QD
     Route: 048
  16. CLOPIDOGREL [Concomitant]
     Active Substance: CLOPIDOGREL BISULFATE
     Indication: Thrombosis
     Dosage: 75 MILLIGRAM, QD
     Route: 048
  17. LOPERAMIDE [Concomitant]
     Active Substance: LOPERAMIDE
     Indication: Diarrhoea
     Dosage: 2 MILLIGRAM, QID
     Route: 060
  18. ALBUTEROL [Concomitant]
     Active Substance: ALBUTEROL
     Indication: Chronic obstructive pulmonary disease
     Dosage: 0.1 MILLIGRAM, QD
     Route: 050
  19. BECLOMETHASONE DIPROPIONATE [Concomitant]
     Active Substance: BECLOMETHASONE DIPROPIONATE
     Indication: Chronic obstructive pulmonary disease
     Dosage: UNK UNK, QD
     Route: 050
  20. BONVIVA [Concomitant]
     Active Substance: IBANDRONATE SODIUM
     Indication: Osteoporosis
     Dosage: 3 MILLIGRAM, OTHER
     Route: 042
     Dates: start: 2017
  21. Unacid [Concomitant]
     Indication: Pneumonia
     Dosage: UNK
     Route: 065
     Dates: start: 201709, end: 201709
  22. CORTISONE [Concomitant]
     Active Substance: CORTISONE
     Indication: Chronic obstructive pulmonary disease
     Dosage: 250 MILLIGRAM, SINGLE
     Route: 065
     Dates: start: 201709, end: 201709
  23. ATROVENT [Concomitant]
     Active Substance: IPRATROPIUM BROMIDE
     Indication: Chronic obstructive pulmonary disease
     Route: 050
  24. FENTANYL [Concomitant]
     Active Substance: FENTANYL
     Indication: Pain
     Dosage: 25 MICROGRAM
     Route: 062
  25. METAMIZOLE [Concomitant]
     Active Substance: METAMIZOLE
     Indication: Pain
     Dosage: 1000 MILLIGRAM, PRN
     Route: 048
  26. AMPICILLIN SODIUM\SULBACTAM SODIUM [Concomitant]
     Active Substance: AMPICILLIN SODIUM\SULBACTAM SODIUM
     Indication: Vascular device infection
     Dosage: UNK
     Route: 065
     Dates: start: 201806, end: 201806
  27. FLUCLOXACILLIN [Concomitant]
     Active Substance: FLUCLOXACILLIN
     Indication: Cellulitis
     Dosage: UNK
     Route: 065
     Dates: start: 201806, end: 201806
  28. FLUCLOXACILLIN [Concomitant]
     Active Substance: FLUCLOXACILLIN
     Dosage: 999 UNK
     Route: 065
     Dates: start: 201806, end: 201806
  29. FLUCLOXACILLIN [Concomitant]
     Active Substance: FLUCLOXACILLIN
     Dosage: 999 UNK
     Route: 065
     Dates: start: 201806, end: 201806
  30. PROPOFOL [Concomitant]
     Active Substance: PROPOFOL
     Indication: Endoscopy upper gastrointestinal tract
     Dosage: 650 MILLIGRAM, SINGLE
     Route: 042
     Dates: start: 20200903, end: 20200903
  31. PROPOFOL [Concomitant]
     Active Substance: PROPOFOL
     Indication: Colonoscopy
     Dosage: 320 MILLIGRAM, SINGLE
     Route: 042
     Dates: start: 20200903, end: 20200903
  32. Covid-19 vaccine [Concomitant]
     Indication: Immunisation
     Dosage: 999 UNK
     Route: 030
     Dates: start: 202104, end: 202106

REACTIONS (5)
  - Gastritis [Recovered/Resolved]
  - Large intestine polyp [Recovered/Resolved]
  - Gastric polyps [Recovered/Resolved]
  - Pancreatic steatosis [Not Recovered/Not Resolved]
  - Hepatic steatosis [Not Recovered/Not Resolved]

NARRATIVE: CASE EVENT DATE: 20190801
